FAERS Safety Report 5952570-X (Version None)
Quarter: 2008Q4

REPORT INFORMATION
  Report Type: 
  Country: None (occurrence: None)
  Receive Date: 20081029
  Receipt Date: 20080619
  Transmission Date: 20090506
  Serious: Yes (Other)
  Sender: FDA-Public Use
  Company Number: 49712

PATIENT
  Age: 52 Year
  Sex: Female

DRUGS (1)
  1. METHOTREXATE [Suspect]
     Dosage: 0.7 ML ONCE WEEKLY SUBCUTANEOULY
     Route: 058
     Dates: start: 20060801

REACTIONS (3)
  - HYPERSENSITIVITY [None]
  - INJECTION SITE REACTION [None]
  - SWELLING [None]
